FAERS Safety Report 19113267 (Version 1)
Quarter: 2021Q2

REPORT INFORMATION
  Report Type: Spontaneous
  Country: FR (occurrence: FR)
  Receive Date: 20210409
  Receipt Date: 20210409
  Transmission Date: 20210717
  Serious: Yes (Other)
  Sender: FDA-Public Use
  Company Number: FR-AUROBINDO-AUR-APL-2017-41407

PATIENT
  Age: 12 Month
  Sex: Male

DRUGS (7)
  1. VINCRISTINE [Suspect]
     Active Substance: VINCRISTINE
     Indication: CONGENITAL RETINOBLASTOMA
  2. CARBOPLATIN. [Suspect]
     Active Substance: CARBOPLATIN
     Indication: CONGENITAL RETINOBLASTOMA
     Dosage: UNK
     Route: 065
  3. MELPHALAN INJECTION [Suspect]
     Active Substance: MELPHALAN
     Indication: CONGENITAL RETINOBLASTOMA
     Dosage: UNK
     Route: 013
  4. MELPHALAN INJECTION [Suspect]
     Active Substance: MELPHALAN
     Dosage: 4 IVT INJECTIONS OF 30 MICROG/0.1ML AND 4 IC INJECTIONS OF 15 MICROG/0.05ML WERE GIVEN ALTERNATIVELY
     Route: 031
  5. VINCRISTINE [Suspect]
     Active Substance: VINCRISTINE
     Indication: RETINOBLASTOMA
     Dosage: UNK
     Route: 065
  6. ETOPOSIDE. [Suspect]
     Active Substance: ETOPOSIDE
     Indication: CONGENITAL RETINOBLASTOMA
  7. ETOPOSIDE. [Suspect]
     Active Substance: ETOPOSIDE
     Indication: RETINOBLASTOMA
     Dosage: UNK
     Route: 065

REACTIONS (4)
  - Retinal neovascularisation [Unknown]
  - Choroidal neovascularisation [Unknown]
  - Chorioretinal disorder [Unknown]
  - Retinal vascular disorder [Unknown]
